FAERS Safety Report 10486328 (Version 2)
Quarter: 2014Q4

REPORT INFORMATION
  Report Type: Spontaneous
  Country: US (occurrence: US)
  Receive Date: 20141001
  Receipt Date: 20141219
  Transmission Date: 20150528
  Serious: Yes (Hospitalization, Other)
  Sender: FDA-Public Use
  Company Number: US-BAYER-2014-144985

PATIENT
  Age: 31 Year
  Sex: Female
  Weight: 61 kg

DRUGS (1)
  1. MIRENA [Suspect]
     Active Substance: LEVONORGESTREL
     Indication: CONTRACEPTION
     Dosage: 20 MCG/24HR, CONT
     Route: 015
     Dates: start: 20100504, end: 20121203

REACTIONS (8)
  - Abdominal pain lower [None]
  - Injury [None]
  - Device dislocation [None]
  - Ectopic pregnancy with contraceptive device [None]
  - Drug ineffective [None]
  - Uterine perforation [None]
  - Genital haemorrhage [None]
  - Device issue [None]

NARRATIVE: CASE EVENT DATE: 201005
